FAERS Safety Report 8600224 (Version 3)
Quarter: 2013Q1

REPORT INFORMATION
  Report Type: Spontaneous
  Country: US (occurrence: US)
  Receive Date: 20120605
  Receipt Date: 20130319
  Transmission Date: 20140127
  Serious: Yes (Hospitalization, Disabling, Other)
  Sender: FDA-Public Use
  Company Number: US-009507513-1205USA05075

PATIENT
  Sex: Female

DRUGS (6)
  1. FOSAMAX [Suspect]
     Indication: OSTEOPOROSIS
     Dosage: 10 MG, UNK
     Route: 048
     Dates: start: 20001220
  2. FOSAMAX [Suspect]
     Indication: OSTEOPENIA
     Dosage: 70 MG, QW
     Route: 048
     Dates: start: 20050121, end: 20100824
  3. ALENDRONATE SODIUM [Suspect]
     Indication: OSTEOPOROSIS
     Dosage: 70 MG, QW
     Route: 048
     Dates: start: 20080618, end: 20100528
  4. ALENDRONATE SODIUM [Suspect]
     Indication: OSTEOPENIA
  5. CALCIUM (UNSPECIFIED) [Concomitant]
     Dosage: 1200 MG, QD
     Route: 048
     Dates: start: 20001220
  6. VITAMIN D (UNSPECIFIED) [Concomitant]
     Dosage: UNK
     Route: 048
     Dates: start: 20001220

REACTIONS (27)
  - Femur fracture [Not Recovered/Not Resolved]
  - Open reduction of fracture [Unknown]
  - Fall [Unknown]
  - Low turnover osteopathy [Not Recovered/Not Resolved]
  - Thrombocytopenia [Unknown]
  - Dehydration [Unknown]
  - Cardiac failure congestive [Unknown]
  - Syncope [Unknown]
  - Glomerulonephritis [Unknown]
  - Hypertension [Unknown]
  - Hypercholesterolaemia [Unknown]
  - Tachycardia [Unknown]
  - Carotid artery disease [Unknown]
  - Osteoarthritis [Unknown]
  - Chronic obstructive pulmonary disease [Unknown]
  - Mitral valve incompetence [Unknown]
  - Biopsy breast normal [Unknown]
  - Viral infection [Unknown]
  - Liver function test abnormal [Unknown]
  - Aortic stenosis [Unknown]
  - Coronary artery disease [Unknown]
  - Tooth disorder [Unknown]
  - Infection [Unknown]
  - Anaemia postoperative [Unknown]
  - Road traffic accident [Unknown]
  - Excoriation [Unknown]
  - Pain in extremity [Unknown]
